FAERS Safety Report 4644290-9 (Version None)
Quarter: 2005Q2

REPORT INFORMATION
  Report Type: 
  Country: None (occurrence: None)
  Receive Date: 20050422
  Receipt Date: 20050413
  Transmission Date: 20051028
  Serious: Yes (Death, Life-Threatening, Hospitalization)
  Sender: FDA-Public Use
  Company Number: 213335

PATIENT
  Age: 79 Year
  Sex: Male
  Weight: 69 kg

DRUGS (19)
  1. MABTHERA (RITUXIMAB) CONC FOR SOLUTION FOR INFUSION [Suspect]
     Indication: DIFFUSE LARGE B-CELL LYMPHOMA
     Dosage: 375 MG/M2
     Dates: start: 20041230, end: 20050311
  2. CYCLOPHOSPHAMIDE [Suspect]
     Indication: DIFFUSE LARGE B-CELL LYMPHOMA
     Dates: start: 20050131, end: 20050311
  3. DOXORUBICIN HYDROCHLORIDE [Suspect]
     Indication: DIFFUSE LARGE B-CELL LYMPHOMA
     Dates: start: 20050131, end: 20050311
  4. VINCRISTINE [Suspect]
     Indication: DIFFUSE LARGE B-CELL LYMPHOMA
     Dates: start: 20060131, end: 20050311
  5. PREDNISONE [Suspect]
     Indication: DIFFUSE LARGE B-CELL LYMPHOMA
     Dates: start: 20050131, end: 20050311
  6. ETOPOSIDE [Suspect]
     Indication: DIFFUSE LARGE B-CELL LYMPHOMA
     Dates: start: 20050131, end: 20050111
  7. DISALUNIL (HYDROCHLOROTHIAZIDE) [Concomitant]
  8. BISOPROLOL/HYDROCHLOROTHIAZIDE (HYDROCHLOROTHIAZIDE, BISOPROLOL FUMARA [Concomitant]
  9. OMNIC (TAMSULOSIN HYDROCHLORIDE) [Concomitant]
  10. ATORVASTATIN CALCIUM [Concomitant]
  11. CAPTO (CAPTOPRIL) [Concomitant]
  12. NITROSORBON (ISOSORBIDE DINITRATE) [Concomitant]
  13. PANTOZOL (PANTOPRAZOLE) [Concomitant]
  14. COTRIM FORTE (TRIMETHOPRIM, SULFAMETHOXAZOLE) [Concomitant]
  15. THIOCTACID (THIOCTIC ACID) [Concomitant]
  16. NEURONTIN [Concomitant]
  17. ALLOPURINOL [Concomitant]
  18. ENOXAPARIN SODIUM [Concomitant]
  19. NEUPOGEN [Concomitant]

REACTIONS (9)
  - AGRANULOCYTOSIS [None]
  - BLOOD LACTATE DEHYDROGENASE INCREASED [None]
  - C-REACTIVE PROTEIN INCREASED [None]
  - HAEMOGLOBIN DECREASED [None]
  - PLATELET COUNT DECREASED [None]
  - PNEUMONIA [None]
  - RESPIRATORY FAILURE [None]
  - SEPTIC SHOCK [None]
  - VENTRICULAR FIBRILLATION [None]
